FAERS Safety Report 9221472 (Version 1)
Quarter: 2013Q2

REPORT INFORMATION
  Report Type: Spontaneous
  Country: US (occurrence: None)
  Receive Date: 20130408
  Receipt Date: 20130408
  Transmission Date: 20140414
  Serious: No
  Sender: FDA-Public Use
  Company Number: None

PATIENT
  Age: 62 Year
  Sex: Female
  Weight: 73.4 kg

DRUGS (1)
  1. LEVAQUIN [Suspect]
     Route: 042
     Dates: start: 20130303, end: 20130314

REACTIONS (1)
  - Muscle spasms [None]
